FAERS Safety Report 9734750 (Version 2)
Quarter: 2013Q4

REPORT INFORMATION
  Report Type: Report from Study
  Country: US (occurrence: US)
  Receive Date: 20131206
  Receipt Date: 20131206
  Transmission Date: 20140711
  Serious: Yes (Other)
  Sender: FDA-Public Use
  Company Number: US-ROCHE-1268622

PATIENT
  Sex: Male
  Weight: 60 kg

DRUGS (3)
  1. NUTROPIN AQ [Suspect]
     Indication: PRODUCT USED FOR UNKNOWN INDICATION
     Route: 058
  2. ZYRTEC [Concomitant]
  3. FLONASE [Concomitant]

REACTIONS (4)
  - Drug dose omission [Unknown]
  - Oppositional defiant disorder [Unknown]
  - Attention deficit/hyperactivity disorder [Unknown]
  - Growth retardation [Unknown]
